FAERS Safety Report 10217098 (Version 2)
Quarter: 2014Q2

REPORT INFORMATION
  Report Type: Spontaneous
  Country: JP (occurrence: JP)
  Receive Date: 20140604
  Receipt Date: 20140611
  Transmission Date: 20141212
  Serious: Yes (Hospitalization)
  Sender: FDA-Public Use
  Company Number: JP-JNJFOC-20140520255

PATIENT
  Age: 82 Year
  Sex: Male

DRUGS (5)
  1. TRAMCET [Suspect]
     Indication: PAIN
     Dosage: 2 DOSES ONCE A DAY
     Route: 048
     Dates: start: 20140512, end: 20140519
  2. LOXONIN [Suspect]
     Indication: PRODUCT USED FOR UNKNOWN INDICATION
     Dosage: 180 MG X 1 PER 1 DAY
     Route: 048
     Dates: start: 20140511
  3. NEXIUM [Suspect]
     Indication: PRODUCT USED FOR UNKNOWN INDICATION
     Route: 048
     Dates: start: 20140511
  4. PRIMPERAN [Concomitant]
     Indication: PRODUCT USED FOR UNKNOWN INDICATION
     Dosage: 5 MG X 1 PER 1 DAY
     Route: 048
     Dates: start: 20140512, end: 20140519
  5. VOLTAREN SR [Concomitant]
     Route: 054

REACTIONS (2)
  - Rash [Recovered/Resolved]
  - Pyrexia [Recovered/Resolved]
